FAERS Safety Report 8093615-3 (Version None)
Quarter: 2012Q1

REPORT INFORMATION
  Report Type: 
  Country: None (occurrence: None)
  Receive Date: 20120129
  Receipt Date: 20111028
  Transmission Date: 20120608
  Serious: No
  Sender: FDA-Public Use
  Company Number: US-ABBOTT-11P-163-0856934-00

PATIENT
  Age: 27 Year
  Sex: Female

DRUGS (2)
  1. ASACOL [Concomitant]
     Indication: ULCER
  2. HUMIRA [Suspect]
     Indication: CROHN'S DISEASE
     Dates: start: 20110730

REACTIONS (4)
  - FUNGAL INFECTION [None]
  - NAUSEA [None]
  - URINARY TRACT INFECTION [None]
  - POLLAKIURIA [None]
